FAERS Safety Report 21010600 (Version 1)
Quarter: 2022Q2

REPORT INFORMATION
  Report Type: Spontaneous
  Country: HR (occurrence: HR)
  Receive Date: 20220627
  Receipt Date: 20220627
  Transmission Date: 20220721
  Serious: Yes (Other)
  Sender: FDA-Public Use
  Company Number: None

PATIENT
  Age: 35 Year
  Sex: Female
  Weight: 73 kg

DRUGS (4)
  1. LYRICA [Suspect]
     Active Substance: PREGABALIN
     Indication: Neuralgia
     Dosage: 25 MG, 2X/DAY
     Route: 048
     Dates: start: 20220428, end: 20220529
  2. LEVOTHYROXINE SODIUM [Concomitant]
     Active Substance: LEVOTHYROXINE SODIUM
     Indication: Hypothyroidism
     Dosage: DOSAGE ONCE A DAY (TWICE A WEEK, ON WEDNESDAY AND SATURDAY)
     Route: 048
     Dates: start: 2011
  3. LEVOTHYROXINE SODIUM [Concomitant]
     Active Substance: LEVOTHYROXINE SODIUM
     Dosage: DOSAGE 1X DAILY (5X PER WEEK) (MON.DAY, TUESDAY, THURSDAY., FRIDAY., SUNDAY)
     Route: 048
     Dates: start: 2010
  4. CEPHALORIDINE [Concomitant]
     Active Substance: CEPHALORIDINE
     Indication: Heavy menstrual bleeding
     Dosage: UNK
     Route: 048

REACTIONS (1)
  - Muscle rupture [Recovering/Resolving]

NARRATIVE: CASE EVENT DATE: 20220518
